FAERS Safety Report 9838308 (Version 1)
Quarter: 2013Q4

REPORT INFORMATION
  Report Type: Spontaneous
  Country: US (occurrence: None)
  Receive Date: 20131206
  Receipt Date: 20131206
  Transmission Date: 20140711
  Serious: Yes (Hospitalization)
  Sender: FDA-Public Use
  Company Number: 365645

PATIENT
  Age: 63 Year
  Sex: Female
  Weight: 99.79 kg

DRUGS (2)
  1. NOVOLOG [Suspect]
     Indication: TYPE 2 DIABETES MELLITUS
     Dosage: SLIDING SCALE, SUBCUTAN.PUMP
     Dates: start: 2006
  2. NOVOLOG [Suspect]
     Dosage: SLIDING SCALE, SUBCUTAN.PUMP
     Dates: start: 2006

REACTIONS (1)
  - Blood glucose increased [None]
